FAERS Safety Report 8292491-3 (Version None)
Quarter: 2012Q2

REPORT INFORMATION
  Report Type: 
  Country: None (occurrence: None)
  Receive Date: 20120417
  Receipt Date: 20110706
  Transmission Date: 20120825
  Serious: No
  Sender: FDA-Public Use
  Company Number: US-ASTRAZENECA-2011SE40620

PATIENT
  Sex: Female

DRUGS (13)
  1. METFORMIN HCL [Suspect]
     Route: 065
  2. HYDROCODEINE [Suspect]
     Route: 065
  3. ZETIA [Suspect]
     Route: 065
  4. LEVOTHYROXINE SODIUM [Suspect]
     Route: 065
  5. LIDOCAINE [Suspect]
     Route: 065
  6. VITAMIN D [Suspect]
     Route: 065
  7. ISTALOL [Suspect]
     Route: 065
  8. CLIMARA [Suspect]
     Route: 065
  9. ZIPSOR [Suspect]
     Route: 065
  10. CRESTOR [Suspect]
     Indication: HYPERCHOLESTEROLAEMIA
     Route: 048
  11. ELMIRON [Suspect]
     Route: 065
  12. FISH OIL [Suspect]
     Route: 065
  13. NEXIUM [Suspect]
     Indication: GASTROOESOPHAGEAL REFLUX DISEASE
     Route: 048

REACTIONS (10)
  - FIBROMYALGIA [None]
  - MIGRAINE [None]
  - GASTROOESOPHAGEAL REFLUX DISEASE [None]
  - GLAUCOMA [None]
  - BLOOD CHOLESTEROL INCREASED [None]
  - RICKETS [None]
  - DIABETES MELLITUS [None]
  - BASEDOW'S DISEASE [None]
  - CYSTITIS INTERSTITIAL [None]
  - DRUG INEFFECTIVE [None]
